FAERS Safety Report 6993358-0 (Version None)
Quarter: 2010Q3

REPORT INFORMATION
  Report Type: 
  Country: None (occurrence: None)
  Receive Date: 20100917
  Receipt Date: 20100204
  Transmission Date: 20110219
  Serious: Yes (Other)
  Sender: FDA-Public Use
  Company Number: US-ASTRAZENECA-2009SE15680

PATIENT
  Age: 50 Year
  Sex: Female
  Weight: 93.9 kg

DRUGS (4)
  1. SEROQUEL [Suspect]
     Indication: POST-TRAUMATIC STRESS DISORDER
     Dosage: VARIOUS DOSES
     Route: 048
     Dates: start: 19990101
  2. SEROQUEL [Suspect]
     Indication: BIPOLAR DISORDER
     Dosage: VARIOUS DOSES
     Route: 048
     Dates: start: 19990101
  3. CELEXA [Concomitant]
  4. ALPRAZOLAM [Concomitant]

REACTIONS (3)
  - DIABETIC KETOACIDOSIS [None]
  - OBESITY [None]
  - TYPE 2 DIABETES MELLITUS [None]
